FAERS Safety Report 9335783 (Version 1)
Quarter: 2013Q2

REPORT INFORMATION
  Report Type: Spontaneous
  Country: US (occurrence: US)
  Receive Date: 20130606
  Receipt Date: 20130606
  Transmission Date: 20140414
  Serious: Yes (Hospitalization)
  Sender: FDA-Public Use
  Company Number: US-ASTRAZENECA-2013SE38157

PATIENT
  Sex: Female

DRUGS (4)
  1. OMEPRAZOLE [Suspect]
     Route: 048
  2. OMEPRAZOLE [Suspect]
     Route: 048
  3. SENOKOT-S [Suspect]
     Route: 065
  4. CHEMOTHERAPY [Concomitant]

REACTIONS (2)
  - Proctalgia [Unknown]
  - Rectal haemorrhage [Unknown]
